FAERS Safety Report 7808772-0 (Version None)
Quarter: 2011Q4

REPORT INFORMATION
  Report Type: 
  Country: None (occurrence: None)
  Receive Date: 20111012
  Receipt Date: 20110928
  Transmission Date: 20120403
  Serious: Yes (Other)
  Sender: FDA-Public Use
  Company Number: PHHY2011BR86629

PATIENT
  Age: 61 Year
  Sex: Male
  Weight: 101.5 kg

DRUGS (1)
  1. RASILEZ [Suspect]
     Dosage: 300 MG, QD

REACTIONS (3)
  - BLOOD CREATININE INCREASED [None]
  - BLOOD GLUCOSE INCREASED [None]
  - PROTEINURIA [None]
